FAERS Safety Report 6234130-9 (Version None)
Quarter: 2009Q2

REPORT INFORMATION
  Report Type: 
  Country: None (occurrence: None)
  Receive Date: 20090611
  Receipt Date: 20080519
  Transmission Date: 20091009
  Serious: Yes (Other)
  Sender: FDA-Public Use
  Company Number: 20080140

PATIENT
  Sex: Female

DRUGS (2)
  1. CYANOCOBALAMIN [Suspect]
     Dosage: DOSE/DATE OF ADMIN
  2. VITAMIN B COMPLEX CAP [Concomitant]

REACTIONS (1)
  - SKIN REACTION [None]
